FAERS Safety Report 16348589 (Version 2)
Quarter: 2019Q4

REPORT INFORMATION
  Report Type: Spontaneous
  Country: CA (occurrence: CA)
  Receive Date: 20190523
  Receipt Date: 20191015
  Transmission Date: 20200122
  Serious: Yes (Death, Life-Threatening, Hospitalization, Disabling, Other)
  Sender: FDA-Public Use
  Company Number: CA-TEVA-2019-CA-1051511

PATIENT
  Age: 65 Year
  Sex: Female
  Weight: 66 kg

DRUGS (27)
  1. LASIX [Concomitant]
     Active Substance: FUROSEMIDE
  2. NOVORAPID [Concomitant]
     Active Substance: INSULIN ASPART
  3. OXYGEN. [Concomitant]
     Active Substance: OXYGEN
     Route: 045
  4. CARIPUL [Suspect]
     Active Substance: EPOPROSTENOL
     Indication: PULMONARY ARTERIAL HYPERTENSION
     Route: 042
  5. LANTUS [Concomitant]
     Active Substance: INSULIN GLARGINE
  6. CARIPUL [Suspect]
     Active Substance: EPOPROSTENOL
     Route: 042
  7. BIOTIN/CALCIUM-D-PANTOTHENATE/NICOTIN AMIDE/PYRIDOXINE/RIBOFLAVIN/THIA [Concomitant]
  8. CODEINE/CODEINE SULFATE [Concomitant]
     Active Substance: CODEINE SULFATE
  9. ESOMEPRAZOLE MAGNESIUM TRIHYDRATE [Concomitant]
     Active Substance: ESOMEPRAZOLE MAGNESIUM
  10. SILDENAFIL CITRATE. [Suspect]
     Active Substance: SILDENAFIL CITRATE
     Indication: PULMONARY ARTERIAL HYPERTENSION
     Dosage: 60 MILLIGRAM DAILY;
     Route: 048
  11. ACETAMINOPHEN/CAFFEINE/CODEINE PHOSPHATE [Concomitant]
     Active Substance: ACETAMINOPHEN\CAFFEINE\CODEINE PHOSPHATE
  12. GLYBURIDE. [Concomitant]
     Active Substance: GLYBURIDE
  13. IRON [Concomitant]
     Active Substance: IRON
  14. OXYGEN. [Concomitant]
     Active Substance: OXYGEN
     Route: 055
  15. VITAMIN B12 [Concomitant]
     Active Substance: CYANOCOBALAMIN
  16. WARFARIN [Concomitant]
     Active Substance: WARFARIN
  17. OPSUMIT [Suspect]
     Active Substance: MACITENTAN
     Indication: PULMONARY ARTERIAL HYPERTENSION
     Route: 048
  18. FOLIC ACID. [Concomitant]
     Active Substance: FOLIC ACID
  19. SPIRONOLACTONE. [Concomitant]
     Active Substance: SPIRONOLACTONE
  20. SYNTHROID [Concomitant]
     Active Substance: LEVOTHYROXINE SODIUM
  21. POTASSIUM CHLORIDE. [Concomitant]
     Active Substance: POTASSIUM CHLORIDE
  22. ACETAMINOPHEN. [Concomitant]
     Active Substance: ACETAMINOPHEN
  23. ROSUVASTATIN CALCIUM. [Concomitant]
     Active Substance: ROSUVASTATIN CALCIUM
  24. SLOW-K TAB [Concomitant]
     Active Substance: POTASSIUM CHLORIDE
  25. INSULIN ASPART [Concomitant]
     Active Substance: INSULIN ASPART
  26. SPIRONOLACTONE. [Concomitant]
     Active Substance: SPIRONOLACTONE
  27. VENTOLIN [Concomitant]
     Active Substance: ALBUTEROL SULFATE

REACTIONS (32)
  - Chest injury [Fatal]
  - Haemoglobin decreased [Fatal]
  - Pallor [Fatal]
  - Stress [Fatal]
  - Catheter site infection [Fatal]
  - Chest discomfort [Fatal]
  - Contusion [Fatal]
  - Device breakage [Fatal]
  - Fall [Fatal]
  - Nausea [Fatal]
  - Frustration tolerance decreased [Not Recovered/Not Resolved]
  - Therapy non-responder [Not Recovered/Not Resolved]
  - Off label use [Fatal]
  - Decreased appetite [Fatal]
  - Device leakage [Fatal]
  - Dyspnoea [Fatal]
  - Wrong dose [Fatal]
  - Headache [Not Recovered/Not Resolved]
  - Weight decreased [Not Recovered/Not Resolved]
  - Abdominal discomfort [Fatal]
  - Arthralgia [Fatal]
  - Body temperature increased [Fatal]
  - Impaired gastric emptying [Fatal]
  - Cough [Fatal]
  - Oxygen saturation decreased [Not Recovered/Not Resolved]
  - Device malfunction [Fatal]
  - Pneumonia [Fatal]
  - Nausea [Not Recovered/Not Resolved]
  - Condition aggravated [Fatal]
  - Confusional state [Fatal]
  - Increased bronchial secretion [Fatal]
  - Malaise [Fatal]
